FAERS Safety Report 8435531-0 (Version None)
Quarter: 2012Q2

REPORT INFORMATION
  Report Type: 
  Country: None (occurrence: None)
  Receive Date: 20120608
  Receipt Date: 20120608
  Transmission Date: 20120825
  Serious: Yes (Other)
  Sender: FDA-Public Use
  Company Number: None

PATIENT
  Age: 62 Year
  Sex: Male

DRUGS (2)
  1. EXJADE [Suspect]
     Dosage: 250MG DAILY PO
     Route: 048
     Dates: start: 20120511, end: 20120529
  2. EXJADE [Suspect]
     Dosage: 1000MG DAILY PO
     Route: 048

REACTIONS (1)
  - RASH [None]
